FAERS Safety Report 5879931-1 (Version None)
Quarter: 2008Q3

REPORT INFORMATION
  Report Type: 
  Country: None (occurrence: None)
  Receive Date: 20080912
  Receipt Date: 20080902
  Transmission Date: 20090109
  Serious: Yes (Disabling, Other)
  Sender: FDA-Public Use
  Company Number: US-PFIZER INC-2007084610

PATIENT
  Sex: Female
  Weight: 88.9 kg

DRUGS (1)
  1. DETROL LA [Suspect]
     Indication: HYPERTONIC BLADDER
     Route: 048
     Dates: start: 20030101

REACTIONS (5)
  - ARTHRITIS [None]
  - CARTILAGE INJURY [None]
  - DISABILITY [None]
  - HYPERTENSION [None]
  - JOINT INJURY [None]
